FAERS Safety Report 22313719 (Version 1)
Quarter: 2023Q2

REPORT INFORMATION
  Report Type: Spontaneous
  Country: US (occurrence: US)
  Receive Date: 20230512
  Receipt Date: 20230512
  Transmission Date: 20230721
  Serious: Yes (Hospitalization)
  Sender: FDA-Public Use
  Company Number: US-MYLANLABS-2023M1048747

PATIENT
  Age: 33 Year
  Sex: Male

DRUGS (1)
  1. GLYBURIDE [Interacting]
     Active Substance: GLYBURIDE
     Indication: Product used for unknown indication
     Dosage: 2 DOSAGE FORM (~2 UNMARKED LIGHT BLUE PILLS)
     Route: 048

REACTIONS (6)
  - Hypoglycaemia [Recovered/Resolved]
  - Loss of consciousness [Recovered/Resolved]
  - Hyperhidrosis [Recovered/Resolved]
  - Adulterated product [Recovered/Resolved]
  - Alcohol interaction [Recovered/Resolved]
  - Drug abuse [Recovered/Resolved]
